APPROVED DRUG PRODUCT: OXYBUTYNIN CHLORIDE
Active Ingredient: OXYBUTYNIN CHLORIDE
Strength: 5MG
Dosage Form/Route: TABLET;ORAL
Application: A074625 | Product #001 | TE Code: AB
Applicant: AIPING PHARMACEUTICAL INC
Approved: Jul 31, 1996 | RLD: No | RS: No | Type: RX